FAERS Safety Report 24097879 (Version 3)
Quarter: 2024Q3

REPORT INFORMATION
  Report Type: Spontaneous
  Country: CA (occurrence: CA)
  Receive Date: 20240716
  Receipt Date: 20240819
  Transmission Date: 20241017
  Serious: No
  Sender: PFIZER
  Company Number: CA-PFIZER INC-202400207752

PATIENT

DRUGS (1)
  1. FRAGMIN [Suspect]
     Active Substance: DALTEPARIN SODIUM
     Dosage: 15000 IU SYRINGE 5 X 0.6 ML

REACTIONS (1)
  - Device mechanical issue [Unknown]
